FAERS Safety Report 4679324-9 (Version None)
Quarter: 2005Q2

REPORT INFORMATION
  Report Type: 
  Country: None (occurrence: None)
  Receive Date: 20050531
  Receipt Date: 20050520
  Transmission Date: 20051028
  Serious: No
  Sender: FDA-Public Use
  Company Number: B0378872A

PATIENT
  Age: 16 Year
  Sex: Female
  Weight: 53.8873 kg

DRUGS (3)
  1. CEFAZOLIN [Suspect]
     Indication: PREOPERATIVE CARE
     Dosage: 1 GRAM(S) /PER DAY / INTRAVENOUS
     Route: 042
     Dates: start: 20050331
  2. HYDROCORTISONE [Concomitant]
  3. FAMOTIDINE [Concomitant]

REACTIONS (2)
  - ANAPHYLACTOID REACTION [None]
  - BLOOD PRESSURE DIASTOLIC DECREASED [None]
